FAERS Safety Report 5392203-7 (Version None)
Quarter: 2007Q3

REPORT INFORMATION
  Report Type: 
  Country: None (occurrence: None)
  Receive Date: 20070717
  Receipt Date: 20070717
  Transmission Date: 20080115
  Serious: Yes (Life-Threatening, Hospitalization)
  Sender: FDA-Public Use
  Company Number: None

PATIENT
  Age: 34 Year
  Sex: Male
  Weight: 102.0593 kg

DRUGS (1)
  1. LIPITOR [Suspect]
     Indication: HYPERCHOLESTEROLAEMIA
     Dosage: 10 MG DAILY PO
     Route: 048
     Dates: start: 19980521, end: 20021010

REACTIONS (6)
  - ADVERSE DRUG REACTION [None]
  - APOPTOSIS [None]
  - CEREBROVASCULAR ACCIDENT [None]
  - LACTIC ACIDOSIS [None]
  - MELAS SYNDROME [None]
  - NERVOUS SYSTEM DISORDER [None]
